FAERS Safety Report 22182874 (Version 2)
Quarter: 2023Q2

REPORT INFORMATION
  Report Type: Spontaneous
  Country: US (occurrence: US)
  Receive Date: 20230406
  Receipt Date: 20230425
  Transmission Date: 20230721
  Serious: No
  Sender: FDA-Public Use
  Company Number: US-ALLERGAN-2237546US

PATIENT
  Age: 43 Year
  Sex: Female

DRUGS (1)
  1. QULIPTA [Suspect]
     Active Substance: ATOGEPANT
     Indication: Migraine
     Dosage: UNK
     Dates: start: 20220711, end: 20230102

REACTIONS (3)
  - Migraine [Unknown]
  - Therapy interrupted [Unknown]
  - Headache [Unknown]

NARRATIVE: CASE EVENT DATE: 20230102
